FAERS Safety Report 19840389 (Version 1)
Quarter: 2021Q3

REPORT INFORMATION
  Report Type: Spontaneous
  Country: US (occurrence: US)
  Receive Date: 20210916
  Receipt Date: 20210916
  Transmission Date: 20211014
  Serious: Yes (Other)
  Sender: FDA-Public Use
  Company Number: None

PATIENT
  Sex: Female

DRUGS (4)
  1. PROGESTERONE. [Suspect]
     Active Substance: PROGESTERONE
     Indication: PRODUCT USED FOR UNKNOWN INDICATION
     Route: 030
     Dates: start: 20181110
  2. CABERGOLINE. [Concomitant]
     Active Substance: CABERGOLINE
     Dates: start: 20210907
  3. ESTARYLLA [Concomitant]
     Active Substance: ETHINYL ESTRADIOL\NORGESTIMATE
  4. ESTRADIOL. [Concomitant]
     Active Substance: ESTRADIOL
     Dates: start: 20210525

REACTIONS (2)
  - Reaction to excipient [None]
  - Injection site swelling [None]
